FAERS Safety Report 10183254 (Version 1)
Quarter: 2014Q2

REPORT INFORMATION
  Report Type: Spontaneous
  Country: ES (occurrence: ES)
  Receive Date: 20140520
  Receipt Date: 20140520
  Transmission Date: 20141212
  Serious: Yes (Other)
  Sender: FDA-Public Use
  Company Number: ES-ASTELLAS-2014EU005631

PATIENT
  Sex: 0

DRUGS (1)
  1. ADVAGRAF [Suspect]
     Indication: RENAL TRANSPLANT
     Dosage: UNK, UNKNOWN FREQ.
     Route: 065

REACTIONS (3)
  - Renal impairment [Unknown]
  - Glomerular filtration rate [Unknown]
  - Adverse event [Unknown]
